FAERS Safety Report 20761303 (Version 1)
Quarter: 2022Q2

REPORT INFORMATION
  Report Type: Spontaneous
  Country: US (occurrence: US)
  Receive Date: 20220428
  Receipt Date: 20220428
  Transmission Date: 20220720
  Serious: Yes (Death, Other)
  Sender: FDA-Public Use
  Company Number: US-BRISTOL-MYERS SQUIBB COMPANY-2022-024210

PATIENT
  Age: 86 Year
  Sex: Female

DRUGS (12)
  1. REVLIMID [Suspect]
     Active Substance: LENALIDOMIDE
     Indication: Myelodysplastic syndrome
     Dosage: FREQUENCY 7.5
     Route: 048
     Dates: start: 20200214, end: 20220221
  2. REVLIMID [Suspect]
     Active Substance: LENALIDOMIDE
     Dosage: FREQUENCY 7.5
     Route: 048
     Dates: start: 20200214, end: 20220221
  3. ASPIRIN [Concomitant]
     Active Substance: ASPIRIN
  4. ERYTHROPOIETIN [Concomitant]
     Active Substance: ERYTHROPOIETIN
  5. ONDANSETRON [Concomitant]
     Active Substance: ONDANSETRON
  6. CEPHALEXIN [Concomitant]
     Active Substance: CEPHALEXIN
  7. MAGNESIUM OXIDE [Concomitant]
     Active Substance: MAGNESIUM OXIDE
  8. TYLENOL PM [Concomitant]
     Active Substance: ACETAMINOPHEN\DIPHENHYDRAMINE
  9. IMODIUM [Concomitant]
     Active Substance: LOPERAMIDE HYDROCHLORIDE
  10. DIGOXIN [Concomitant]
     Active Substance: DIGOXIN
  11. OMEPRAZOLE [Concomitant]
     Active Substance: OMEPRAZOLE
  12. PROCRIT [Concomitant]
     Active Substance: ERYTHROPOIETIN

REACTIONS (1)
  - Death [Fatal]

NARRATIVE: CASE EVENT DATE: 20220222
